FAERS Safety Report 13754457 (Version 1)
Quarter: 2017Q3

REPORT INFORMATION
  Report Type: Spontaneous
  Country: CN (occurrence: CN)
  Receive Date: 20170714
  Receipt Date: 20170714
  Transmission Date: 20171127
  Serious: Yes (Other)
  Sender: FDA-Public Use
  Company Number: CN-BAXTER-2017BAX027394

PATIENT
  Age: 30 Year
  Sex: Female
  Weight: 54 kg

DRUGS (1)
  1. 5% GLUCOSE AND 0.9% SODIUM CHLORIDE INJECTION [Suspect]
     Active Substance: DEXTROSE\SODIUM CHLORIDE
     Indication: INFUSION
     Route: 041
     Dates: start: 20170411, end: 20170411

REACTIONS (4)
  - Rash papular [Recovered/Resolved]
  - Erythema [Recovered/Resolved]
  - Exposure during pregnancy [Not Recovered/Not Resolved]
  - Pruritus [Recovered/Resolved]

NARRATIVE: CASE EVENT DATE: 20170411
